FAERS Safety Report 13675517 (Version 2)
Quarter: 2017Q2

REPORT INFORMATION
  Report Type: Spontaneous
  Country: PT (occurrence: PT)
  Receive Date: 20170621
  Receipt Date: 20170628
  Transmission Date: 20170830
  Serious: Yes (Other)
  Sender: FDA-Public Use
  Company Number: PT-PFIZER INC-2017265851

PATIENT
  Age: 35 Year
  Sex: Female

DRUGS (1)
  1. DOSTINEX [Suspect]
     Active Substance: CABERGOLINE
     Indication: SUPPRESSED LACTATION
     Dosage: 0.25 MG, 2X/DAY, DURING 8 DAYS
     Route: 048
     Dates: start: 20170601, end: 20170601

REACTIONS (7)
  - Lack of spontaneous speech [Recovered/Resolved]
  - Movement disorder [Recovered/Resolved]
  - Paralysis [Recovered/Resolved]
  - Disorganised speech [Recovered/Resolved]
  - Irritability [Recovered/Resolved]
  - Asthenia [Recovered/Resolved]
  - Palpitations [Recovered/Resolved]

NARRATIVE: CASE EVENT DATE: 20170601
